FAERS Safety Report 5794468-6 (Version None)
Quarter: 2008Q2

REPORT INFORMATION
  Report Type: 
  Country: None (occurrence: None)
  Receive Date: 20080630
  Receipt Date: 20080617
  Transmission Date: 20081010
  Serious: Yes (Other)
  Sender: FDA-Public Use
  Company Number: FR-ELI_LILLY_AND_COMPANY-FR200806004232

PATIENT
  Age: 24 Year
  Sex: Male

DRUGS (3)
  1. ZYPREXA [Suspect]
     Indication: SCHIZOPHRENIA
     Dosage: 7.5 MG, DAILY (1/D)
     Route: 048
     Dates: start: 20080606
  2. TERCIAN [Concomitant]
     Indication: SCHIZOPHRENIA
     Dosage: UNK, UNK
     Route: 048
     Dates: start: 20080501
  3. RISPERDAL [Concomitant]
     Indication: SCHIZOPHRENIA
     Dosage: UNK, UNK
     Route: 048
     Dates: start: 20080424, end: 20080603

REACTIONS (1)
  - HEPATOCELLULAR INJURY [None]
